FAERS Safety Report 4334544-8 (Version None)
Quarter: 2004Q2

REPORT INFORMATION
  Report Type: 
  Country: None (occurrence: None)
  Receive Date: 20040407
  Receipt Date: 20040324
  Transmission Date: 20050107
  Serious: Yes (Hospitalization)
  Sender: FDA-Public Use
  Company Number: FR-GLAXOSMITHKLINE-B0328243A

PATIENT
  Age: 15 Day
  Sex: Male

DRUGS (3)
  1. RETROVIR [Suspect]
     Indication: ANTIVIRAL PROPHYLAXIS
     Route: 048
     Dates: start: 20020722
  2. RETROVIR [Suspect]
     Indication: HIV INFECTION
     Dates: start: 20020605
  3. ZIDOVUDINE [Suspect]
     Indication: ANTIVIRAL PROPHYLAXIS
     Route: 042
     Dates: start: 20020722, end: 20020722

REACTIONS (9)
  - ANAEMIA [None]
  - BLOOD CREATINE PHOSPHOKINASE INCREASED [None]
  - DRUG EXPOSURE DURING PREGNANCY [None]
  - HYPERLACTACIDAEMIA [None]
  - HYPERREFLEXIA [None]
  - HYPERTONIA [None]
  - HYPOTONIA [None]
  - LACTATE PYRUVATE RATIO INCREASED [None]
  - NEUTROPENIA [None]
